FAERS Safety Report 5833284-3 (Version None)
Quarter: 2008Q3

REPORT INFORMATION
  Report Type: 
  Country: None (occurrence: None)
  Receive Date: 20080804
  Receipt Date: 20080804
  Transmission Date: 20090109
  Serious: Yes (Other)
  Sender: FDA-Public Use
  Company Number: None

PATIENT
  Age: 71 Year
  Sex: Female
  Weight: 110.6777 kg

DRUGS (1)
  1. ESTRADIOL [Suspect]
     Indication: MENOPAUSE
     Dosage: ONE PATCH WEEKLY TRANSDERMAL
     Route: 062
     Dates: start: 20080201

REACTIONS (1)
  - RASH [None]
